FAERS Safety Report 8208945-1 (Version None)
Quarter: 2012Q1

REPORT INFORMATION
  Report Type: 
  Country: None (occurrence: None)
  Receive Date: 20120314
  Receipt Date: 20120306
  Transmission Date: 20120608
  Serious: Yes (Other)
  Sender: FDA-Public Use
  Company Number: US-CELGENEUS-163-21880-12021471

PATIENT
  Sex: Male
  Weight: 72.64 kg

DRUGS (9)
  1. LACTULOSE [Concomitant]
     Indication: CONSTIPATION
     Route: 065
  2. MELPHALAN HYDROCHLORIDE [Concomitant]
     Indication: MULTIPLE MYELOMA
     Dosage: 6 MILLIGRAM
     Route: 065
     Dates: start: 20110826, end: 20111109
  3. FERROUS SULFATE TAB [Concomitant]
     Dosage: 325 MILLIGRAM
     Route: 065
  4. REVLIMID [Suspect]
     Indication: MULTIPLE MYELOMA
     Dosage: 25 MILLIGRAM
     Route: 048
     Dates: start: 20111130, end: 20111220
  5. ALLOPURINOL [Concomitant]
     Dosage: 300 MILLIGRAM
     Route: 065
     Dates: start: 20120103
  6. PANTOPRAZOLE [Concomitant]
     Indication: GASTRITIS
     Dosage: 40 MILLIGRAM
     Route: 065
  7. AMLODIPINE [Concomitant]
     Indication: HYPERTENSION
     Dosage: 5 MILLIGRAM
     Route: 065
  8. REVLIMID [Suspect]
     Dosage: 15 MILLIGRAM
     Route: 048
     Dates: start: 20120125
  9. DEXAMETHASONE [Concomitant]
     Indication: MULTIPLE MYELOMA
     Dosage: 40 MILLIGRAM
     Route: 065
     Dates: start: 20110826, end: 20111109

REACTIONS (1)
  - PANCYTOPENIA [None]
